FAERS Safety Report 5350071-3 (Version None)
Quarter: 2007Q2

REPORT INFORMATION
  Report Type: 
  Country: None (occurrence: None)
  Receive Date: 20070607
  Receipt Date: 20070529
  Transmission Date: 20071010
  Serious: Yes (Hospitalization, Other)
  Sender: FDA-Public Use
  Company Number: CH-ABBOTT-06P-151-0324131-00

PATIENT
  Age: 53 Year
  Sex: Female

DRUGS (9)
  1. LOPINAVIR/RITONAVIR [Suspect]
     Indication: SYSTEMIC ANTIVIRAL TREATMENT
     Dosage: 400/100 MG TWICE A DAY
     Route: 048
     Dates: start: 20040701, end: 20060104
  2. METHADONE HYDROCHLORIDE [Interacting]
     Indication: MENTAL DISORDER
     Dosage: 2 PER DAY
     Route: 048
     Dates: start: 20050601, end: 20060113
  3. METHADONE HYDROCHLORIDE [Interacting]
     Indication: ABNORMAL BEHAVIOUR
  4. PAROXETINE [Concomitant]
     Indication: ANXIETY DISORDER
     Route: 048
     Dates: start: 20020101, end: 20060113
  5. METHYLPHENIDATE HCL [Concomitant]
     Indication: DRUG DEPENDENCE
     Dosage: 2 PER DAY
     Route: 048
     Dates: start: 20030101, end: 20060113
  6. DIDANOSINE [Concomitant]
     Indication: SYSTEMIC ANTIVIRAL TREATMENT
     Route: 048
     Dates: start: 20040701, end: 20060104
  7. TENOFOVIR [Concomitant]
     Indication: SYSTEMIC ANTIVIRAL TREATMENT
     Route: 048
     Dates: start: 20040701, end: 20060104
  8. FOSAMPRENAVIR [Concomitant]
     Indication: SYSTEMIC ANTIVIRAL TREATMENT
     Dosage: 2 PER DAY
     Route: 048
     Dates: start: 20040701, end: 20060120
  9. OXAZEPAM [Concomitant]
     Indication: ANXIETY DISORDER

REACTIONS (10)
  - ABNORMAL BEHAVIOUR [None]
  - ASCITES [None]
  - DRUG INTERACTION [None]
  - DRUG LEVEL INCREASED [None]
  - HEPATIC CIRRHOSIS [None]
  - HEPATIC FAILURE [None]
  - HYPERLACTACIDAEMIA [None]
  - MENTAL DISORDER [None]
  - TORSADE DE POINTES [None]
  - WEIGHT DECREASED [None]
